FAERS Safety Report 8436163-0 (Version None)
Quarter: 2012Q2

REPORT INFORMATION
  Report Type: 
  Country: None (occurrence: None)
  Receive Date: 20120614
  Receipt Date: 20120611
  Transmission Date: 20120825
  Serious: Yes (Other)
  Sender: FDA-Public Use
  Company Number: US-PFIZER INC-2012126193

PATIENT
  Sex: Female
  Weight: 89.796 kg

DRUGS (27)
  1. ZOLOFT [Suspect]
     Indication: DEPRESSION
     Dosage: UNK
  2. ZOLOFT [Suspect]
     Indication: POST-TRAUMATIC STRESS DISORDER
  3. WELLBUTRIN [Concomitant]
     Indication: DEPRESSION
     Dosage: UNK
  4. WELLBUTRIN [Concomitant]
     Indication: POST-TRAUMATIC STRESS DISORDER
  5. LASIX [Concomitant]
     Indication: DIURETIC THERAPY
     Dosage: UNK
  6. LEXAPRO [Concomitant]
     Indication: NIGHTMARE
  7. FENTANYL [Concomitant]
     Indication: PAIN
     Dosage: UNK
     Route: 062
  8. ASPIRIN [Concomitant]
     Dosage: UNK, DAILY
  9. CHANTIX [Suspect]
     Dosage: 0.5 MG, DAILY
     Dates: start: 20120501
  10. LEXAPRO [Concomitant]
     Indication: POST-TRAUMATIC STRESS DISORDER
  11. PROZAC [Concomitant]
     Indication: DEPRESSION
     Dosage: UNK
  12. PROZAC [Concomitant]
     Indication: NIGHTMARE
  13. NORCO [Concomitant]
     Indication: PAIN
     Dosage: UNK
  14. NEURONTIN [Suspect]
     Indication: DEPRESSION
     Dosage: UNK
  15. XANAX [Suspect]
     Indication: ANXIETY
     Dosage: UNK
  16. ZOLOFT [Suspect]
     Indication: NIGHTMARE
  17. WELLBUTRIN [Concomitant]
     Indication: NIGHTMARE
  18. POTASSIUM [Concomitant]
     Dosage: UNK
  19. NEURONTIN [Suspect]
     Indication: NIGHTMARE
  20. NEURONTIN [Suspect]
     Indication: POST-TRAUMATIC STRESS DISORDER
  21. ZANTAC [Concomitant]
     Indication: GASTRIC DISORDER
     Dosage: UNK
  22. VITAMIN D [Concomitant]
     Dosage: 1000 IU, DAILY
  23. PROZAC [Concomitant]
     Indication: POST-TRAUMATIC STRESS DISORDER
  24. OXYGEN [Concomitant]
     Indication: CHRONIC OBSTRUCTIVE PULMONARY DISEASE
     Dosage: UNK
  25. CHANTIX [Suspect]
     Indication: SMOKING CESSATION THERAPY
     Dosage: 0.5 MG, DAILY
     Dates: start: 20120301, end: 20120401
  26. LEXAPRO [Concomitant]
     Indication: DEPRESSION
     Dosage: UNK
  27. MELATONIN [Concomitant]
     Indication: SLEEP DISORDER
     Dosage: UNK

REACTIONS (7)
  - POST-TRAUMATIC STRESS DISORDER [None]
  - DRUG INEFFECTIVE [None]
  - THERAPEUTIC RESPONSE UNEXPECTED [None]
  - OFF LABEL USE [None]
  - NIGHTMARE [None]
  - DRUG INEFFECTIVE FOR UNAPPROVED INDICATION [None]
  - DEPRESSION [None]
